FAERS Safety Report 6312398-8 (Version None)
Quarter: 2009Q3

REPORT INFORMATION
  Report Type: 
  Country: None (occurrence: None)
  Receive Date: 20090813
  Receipt Date: 20090805
  Transmission Date: 20100115
  Serious: Yes (Other)
  Sender: FDA-Public Use
  Company Number: GB-GDP-09406402

PATIENT
  Age: 13 Month
  Sex: Female

DRUGS (4)
  1. METVIXIA [Suspect]
     Dosage: TOPICAL
     Route: 061
     Dates: start: 20090223, end: 20090223
  2. ANTIVIRALS NOS [Concomitant]
  3. AMITRIPTYLINE [Concomitant]
  4. LANZOPRAZOLE [Concomitant]

REACTIONS (5)
  - CELLULITIS [None]
  - LOCALISED INFECTION [None]
  - OEDEMA PERIPHERAL [None]
  - PAIN IN EXTREMITY [None]
  - SKIN LESION [None]
